FAERS Safety Report 20026551 (Version 1)
Quarter: 2021Q4

REPORT INFORMATION
  Report Type: Spontaneous
  Country: US (occurrence: US)
  Receive Date: 20211102
  Receipt Date: 20211102
  Transmission Date: 20220304
  Serious: No
  Sender: FDA-Public Use
  Company Number: US-BIOMARINAP-US-2021-139270

PATIENT
  Age: 31 Year
  Sex: Female

DRUGS (3)
  1. PALYNZIQ [Suspect]
     Active Substance: PEGVALIASE-PQPZ
     Indication: Phenylketonuria
     Dosage: 2.5 MILLIGRAM, QW
     Route: 058
     Dates: start: 20210928
  2. PEPCID [Concomitant]
     Active Substance: FAMOTIDINE
     Indication: Premedication
     Dosage: 20 MILLIGRAM
     Route: 048
  3. CLARITIN [Concomitant]
     Active Substance: LORATADINE
     Indication: Premedication
     Dosage: 10 MILLIGRAM

REACTIONS (6)
  - Flushing [Unknown]
  - Heart rate increased [Unknown]
  - Diarrhoea [Recovered/Resolved]
  - Injection site erythema [Unknown]
  - Injection site induration [Unknown]
  - Arthralgia [Unknown]

NARRATIVE: CASE EVENT DATE: 20211020
